FAERS Safety Report 25400898 (Version 1)
Quarter: 2025Q2

REPORT INFORMATION
  Report Type: Spontaneous
  Country: US (occurrence: US)
  Receive Date: 20250605
  Receipt Date: 20250605
  Transmission Date: 20250716
  Serious: Yes (Life-Threatening, Hospitalization)
  Sender: MYLAN
  Company Number: US-MYLANLABS-2025M1046858

PATIENT
  Age: 76 Year
  Sex: Male

DRUGS (16)
  1. METOPROLOL [Suspect]
     Active Substance: METOPROLOL
     Indication: Atrial fibrillation
  2. METOPROLOL [Suspect]
     Active Substance: METOPROLOL
     Route: 065
  3. METOPROLOL [Suspect]
     Active Substance: METOPROLOL
     Route: 065
  4. METOPROLOL [Suspect]
     Active Substance: METOPROLOL
  5. DILTIAZEM [Suspect]
     Active Substance: DILTIAZEM
     Indication: Atrial fibrillation
  6. DILTIAZEM [Suspect]
     Active Substance: DILTIAZEM
     Route: 065
  7. DILTIAZEM [Suspect]
     Active Substance: DILTIAZEM
     Route: 065
  8. DILTIAZEM [Suspect]
     Active Substance: DILTIAZEM
  9. APIXABAN [Suspect]
     Active Substance: APIXABAN
     Indication: Atrial fibrillation
  10. APIXABAN [Suspect]
     Active Substance: APIXABAN
     Route: 065
  11. APIXABAN [Suspect]
     Active Substance: APIXABAN
     Route: 065
  12. APIXABAN [Suspect]
     Active Substance: APIXABAN
  13. IBRUTINIB [Concomitant]
     Active Substance: IBRUTINIB
     Indication: Chronic lymphocytic leukaemia
  14. IBRUTINIB [Concomitant]
     Active Substance: IBRUTINIB
     Route: 065
  15. IBRUTINIB [Concomitant]
     Active Substance: IBRUTINIB
     Route: 065
  16. IBRUTINIB [Concomitant]
     Active Substance: IBRUTINIB

REACTIONS (2)
  - Drug ineffective [Unknown]
  - Cerebral haemorrhage [Unknown]
